FAERS Safety Report 12642006 (Version 1)
Quarter: 2016Q3

REPORT INFORMATION
  Report Type: Report from Study
  Country: US (occurrence: US)
  Receive Date: 20160810
  Receipt Date: 20160810
  Transmission Date: 20161109
  Serious: Yes (Hospitalization)
  Sender: FDA-Public Use
  Company Number: US-EISAI MEDICAL RESEARCH-EC-2016-018114

PATIENT
  Age: 86 Year
  Sex: Male

DRUGS (1)
  1. LENVIMA [Suspect]
     Active Substance: LENVATINIB
     Indication: THYROID CANCER
     Route: 048
     Dates: start: 20160614, end: 201607

REACTIONS (4)
  - Fatigue [Unknown]
  - Blood pressure increased [Not Recovered/Not Resolved]
  - Hypertensive encephalopathy [Recovered/Resolved]
  - Muscular weakness [Recovering/Resolving]

NARRATIVE: CASE EVENT DATE: 201606
